FAERS Safety Report 7511672-7 (Version None)
Quarter: 2011Q2

REPORT INFORMATION
  Report Type: 
  Country: None (occurrence: None)
  Receive Date: 20110531
  Receipt Date: 20110524
  Transmission Date: 20111010
  Serious: Yes (Death)
  Sender: FDA-Public Use
  Company Number: JP-JNJFOC-20110208189

PATIENT
  Sex: Female
  Weight: 51 kg

DRUGS (5)
  1. DOXORUBICIN HCL [Suspect]
     Dosage: CYCLE 3
     Route: 042
     Dates: start: 20090831, end: 20090831
  2. DOXORUBICIN HCL [Suspect]
     Dosage: CYCLE 4
     Route: 042
     Dates: start: 20090928, end: 20090928
  3. DOXORUBICIN HCL [Suspect]
     Indication: OVARIAN CANCER RECURRENT
     Dosage: CYCLE 1
     Route: 042
     Dates: start: 20090706, end: 20090706
  4. DOXORUBICIN HCL [Suspect]
     Dosage: CYCLE 2
     Route: 042
     Dates: start: 20090803, end: 20090803
  5. DAI-KENCHU-TO [Concomitant]
     Route: 048
     Dates: end: 20090928

REACTIONS (1)
  - OVARIAN CANCER RECURRENT [None]
